FAERS Safety Report 5255615-8 (Version None)
Quarter: 2007Q1

REPORT INFORMATION
  Report Type: 
  Country: None (occurrence: None)
  Receive Date: 20061201
  Receipt Date: 20060913
  Transmission Date: 20070707
  Serious: No
  Sender: FDA-Public Use
  Company Number: 2006MP001051

PATIENT
  Age: 74 Year
  Sex: Male
  Weight: 94.4 kg

DRUGS (5)
  1. DACOGEN [Suspect]
     Indication: MYELODYSPLASTIC SYNDROME
     Dosage: 20 MG/M**2; QD; IV
     Route: 042
     Dates: start: 20060911, end: 20060915
  2. KYTRIL [Suspect]
     Indication: PREMEDICATION
     Dosage: QD
     Dates: start: 20060911, end: 20060913
  3. INDERAL [Concomitant]
  4. MYSOLINE [Concomitant]
  5. FLOMAX /01280302/ [Concomitant]

REACTIONS (3)
  - CONSTIPATION [None]
  - FLUID RETENTION [None]
  - OFF LABEL USE [None]
